FAERS Safety Report 11485341 (Version 1)
Quarter: 2015Q3

REPORT INFORMATION
  Report Type: Spontaneous
  Country: US (occurrence: None)
  Receive Date: 20150909
  Receipt Date: 20150909
  Transmission Date: 20151125
  Serious: No
  Sender: FDA-Public Use
  Company Number: None

PATIENT
  Age: 68 Year
  Sex: Female
  Weight: 50.8 kg

DRUGS (14)
  1. VITAMIN D [Concomitant]
     Active Substance: CHOLECALCIFEROL
  2. VITAMIN K [Concomitant]
     Active Substance: PHYTONADIONE
  3. ALGAECAL + STRONTIUM SUPPLEMENTS [Concomitant]
  4. SUPPLEMENT [Concomitant]
     Active Substance: UNSPECIFIED INGREDIENT
  5. HYDROCHLOROTHYSIDE [Concomitant]
  6. ASATAXATHIN [Concomitant]
  7. KAVA [Concomitant]
     Active Substance: PIPER METHYSTICUM ROOT
  8. MULTI VITAMINS [Concomitant]
  9. TRIPNALA [Concomitant]
  10. LEVOTHYROXINE. [Concomitant]
     Active Substance: LEVOTHYROXINE
  11. LEVOTHYROXINE. [Suspect]
     Active Substance: LEVOTHYROXINE
     Indication: THYROXINE DECREASED
     Dosage: 1 PILL IN AM
     Route: 048
  12. HERB + TEA [Concomitant]
  13. ASHWAGANDA [Concomitant]
  14. CALMS FORTE 4 KIDS [Concomitant]
     Active Substance: HOMEOPATHICS

REACTIONS (1)
  - Malaise [None]

NARRATIVE: CASE EVENT DATE: 20150908
